FAERS Safety Report 5075003-7 (Version None)
Quarter: 2006Q3

REPORT INFORMATION
  Report Type: 
  Country: None (occurrence: None)
  Receive Date: 20060807
  Receipt Date: 20060807
  Transmission Date: 20061208
  Serious: Yes (Other)
  Sender: FDA-Public Use
  Company Number: None

PATIENT
  Age: 49 Year
  Sex: Female
  Weight: 79.3795 kg

DRUGS (2)
  1. CYMBALTA [Suspect]
     Indication: DEPRESSION
     Dosage: 60MG  DAILY  PO
     Route: 048
     Dates: start: 20050601, end: 20060501
  2. CYMBALTA [Suspect]
     Indication: NEURALGIA
     Dosage: 60MG  DAILY  PO
     Route: 048
     Dates: start: 20050601, end: 20060501

REACTIONS (3)
  - CRYING [None]
  - DEHYDRATION [None]
  - DRUG WITHDRAWAL SYNDROME [None]
